FAERS Safety Report 15716090 (Version 2)
Quarter: 2018Q4

REPORT INFORMATION
  Report Type: Spontaneous
  Country: HU (occurrence: HU)
  Receive Date: 20181213
  Receipt Date: 20181224
  Transmission Date: 20190205
  Serious: Yes (Other)
  Sender: FDA-Public Use
  Company Number: PHHY2018HU175622

PATIENT
  Age: 21 Year
  Sex: Male

DRUGS (4)
  1. AMOXICILLIN+CLAVULANIC ACID [Suspect]
     Active Substance: AMOXICILLIN\CLAVULANIC ACID
     Indication: OROPHARYNGEAL PAIN
     Route: 065
  2. METRONIDAZOLE. [Concomitant]
     Active Substance: METRONIDAZOLE
     Indication: ABSCESS
     Dosage: UNK
     Route: 065
  3. METRONIDAZOLE. [Concomitant]
     Active Substance: METRONIDAZOLE
     Indication: TONSILLITIS
  4. AMOXICILLIN+CLAVULANIC ACID [Suspect]
     Active Substance: AMOXICILLIN\CLAVULANIC ACID
     Indication: TONSILLAR EXUDATE

REACTIONS (12)
  - Hepatic function abnormal [Recovering/Resolving]
  - Drug ineffective for unapproved indication [Unknown]
  - Epstein-Barr virus infection [Unknown]
  - Cytomegalovirus infection [Recovering/Resolving]
  - Pyrexia [Recovered/Resolved]
  - Epstein-Barr virus antibody positive [Recovering/Resolving]
  - Mononucleosis syndrome [Recovering/Resolving]
  - Product use in unapproved indication [Unknown]
  - Liver function test increased [Recovered/Resolved]
  - Swelling [Recovering/Resolving]
  - Lymphocytosis [Not Recovered/Not Resolved]
  - Leukocytosis [Recovering/Resolving]
